FAERS Safety Report 4812937-X (Version None)
Quarter: 2005Q4

REPORT INFORMATION
  Report Type: 
  Country: None (occurrence: None)
  Receive Date: 20051028
  Receipt Date: 20050518
  Transmission Date: 20060501
  Serious: No
  Sender: FDA-Public Use
  Company Number: US-GLAXOSMITHKLINE-A0559185A

PATIENT
  Age: 39 Year
  Sex: Female
  Weight: 127.7 kg

DRUGS (5)
  1. ADVAIR DISKUS 100/50 [Suspect]
     Indication: DRUG USE FOR UNKNOWN INDICATION
     Route: 055
  2. COMBIVENT [Concomitant]
  3. ASTELIN [Concomitant]
  4. ALBUTEROL [Concomitant]
  5. SINGULAIR [Concomitant]

REACTIONS (5)
  - CHAPPED LIPS [None]
  - CHEILITIS [None]
  - GINGIVAL ULCERATION [None]
  - LIP DRY [None]
  - SWELLING FACE [None]
